FAERS Safety Report 23398371 (Version 1)
Quarter: 2024Q1

REPORT INFORMATION
  Report Type: Spontaneous
  Country: US (occurrence: None)
  Receive Date: 20240112
  Receipt Date: 20240112
  Transmission Date: 20240410
  Serious: Yes (unspecified)
  Sender: FDA-Public Use
  Company Number: None

PATIENT
  Age: 89 Year
  Sex: Female
  Weight: 50.4 kg

DRUGS (11)
  1. PAXLOVID [Suspect]
     Active Substance: NIRMATRELVIR\RITONAVIR
     Indication: COVID-19
     Dosage: FREQUENCY : TWICE A DAY;?
     Route: 048
     Dates: start: 20231206, end: 20231211
  2. PAXLOVID [Suspect]
     Active Substance: NIRMATRELVIR\RITONAVIR
     Indication: Disease risk factor
  3. melatonin 5mg tab [Concomitant]
     Dates: start: 20230926
  4. Triamterene/HCTZ 37.5-25 [Concomitant]
     Dates: start: 20230926
  5. FLUTICASONE PROPIONATE [Concomitant]
     Active Substance: FLUTICASONE PROPIONATE
     Dates: start: 20231010
  6. vitamin d 1000 iu [Concomitant]
     Dates: start: 20231017
  7. METOPROLOL [Concomitant]
     Active Substance: METOPROLOL
     Dates: start: 20231030
  8. ipratropium-albuterol inhal sol [Concomitant]
     Dates: start: 20231113
  9. LOSARTAN [Concomitant]
     Active Substance: LOSARTAN
     Dates: start: 20231114
  10. PAXIL [Concomitant]
     Active Substance: PAROXETINE HYDROCHLORIDE
     Dates: start: 20231229
  11. PERMETHRIN [Concomitant]
     Active Substance: PERMETHRIN

REACTIONS (1)
  - Clostridium difficile colitis [None]

NARRATIVE: CASE EVENT DATE: 20240110
